FAERS Safety Report 6769966-9 (Version None)
Quarter: 2010Q2

REPORT INFORMATION
  Report Type: 
  Country: None (occurrence: None)
  Receive Date: 20100615
  Receipt Date: 20100607
  Transmission Date: 20101027
  Serious: Yes (Hospitalization)
  Sender: FDA-Public Use
  Company Number: B0660688A

PATIENT
  Age: 49 Year
  Sex: Female

DRUGS (10)
  1. AVANDAMET [Suspect]
     Indication: DIABETES MELLITUS
     Route: 065
  2. BYETTA [Concomitant]
     Route: 065
  3. UNKNOWN DRUG [Concomitant]
     Route: 065
  4. LETROX [Concomitant]
     Route: 065
  5. SORTIS [Concomitant]
     Route: 065
  6. LIPANTHYL [Concomitant]
     Route: 065
  7. BISOPROLOL [Concomitant]
     Route: 065
  8. DETRALEX [Concomitant]
     Route: 065
  9. SYMBICORT [Concomitant]
     Route: 065
  10. TRAZODONE HCL [Concomitant]
     Route: 065

REACTIONS (10)
  - BLOOD CREATINE PHOSPHOKINASE [None]
  - CARDIAC FAILURE [None]
  - DYSPNOEA [None]
  - FLUID RETENTION [None]
  - HYPERVOLAEMIA [None]
  - MYALGIA [None]
  - MYOGLOBIN BLOOD INCREASED [None]
  - OEDEMA PERIPHERAL [None]
  - PAIN IN EXTREMITY [None]
  - WEIGHT INCREASED [None]
